FAERS Safety Report 6386925-9 (Version None)
Quarter: 2009Q4

REPORT INFORMATION
  Report Type: 
  Country: None (occurrence: None)
  Receive Date: 20091002
  Receipt Date: 20090921
  Transmission Date: 20100525
  Serious: Yes (Other)
  Sender: FDA-Public Use
  Company Number: DE-B.I. PHARMACEUTICALS,INC./RIDGEFIELD-2009-DE-06062DE

PATIENT
  Sex: Male

DRUGS (6)
  1. CATAPRESAN [Suspect]
     Dosage: 1 ANZ
     Route: 048
  2. LIORESAL [Suspect]
     Dosage: 1 ANZ
     Route: 048
  3. METHIOTRANS [Suspect]
     Dosage: 1 ANZ
     Route: 048
  4. MUSARIL [Suspect]
     Dosage: 1 ANZ
     Route: 048
  5. NEXIUM [Suspect]
     Dosage: 2 ANZ
     Route: 048
  6. PREDNISOLONE [Suspect]
     Dosage: 2 ANZ
     Route: 048

REACTIONS (1)
  - MEDICATION ERROR [None]
